FAERS Safety Report 4480909-3 (Version None)
Quarter: 2004Q4

REPORT INFORMATION
  Report Type: 
  Country: None (occurrence: None)
  Receive Date: 20040923
  Receipt Date: 20040520
  Transmission Date: 20050328
  Serious: No
  Sender: FDA-Public Use
  Company Number: USA040568473

PATIENT
  Age: 71 Year
  Sex: Female

DRUGS (2)
  1. FORTEO [Suspect]
     Dates: start: 20040303, end: 20040316
  2. ACTONEL [Concomitant]

REACTIONS (1)
  - ILL-DEFINED DISORDER [None]
